FAERS Safety Report 13756997 (Version 3)
Quarter: 2017Q4

REPORT INFORMATION
  Report Type: Spontaneous
  Country: GB (occurrence: GB)
  Receive Date: 20170714
  Receipt Date: 20171106
  Transmission Date: 20180320
  Serious: Yes (Other)
  Sender: FDA-Public Use
  Company Number: GB-ALLERGAN-1728958US

PATIENT
  Sex: Female

DRUGS (6)
  1. MESALAZINE UNK [Suspect]
     Active Substance: MESALAMINE
     Indication: PRODUCT USED FOR UNKNOWN INDICATION
     Dosage: UNK
     Route: 065
     Dates: end: 2017
  2. LORATADINE. [Concomitant]
     Active Substance: LORATADINE
     Indication: ANTIALLERGIC THERAPY
     Route: 048
  3. TRAMACET [Suspect]
     Active Substance: ACETAMINOPHEN\TRAMADOL
     Indication: PAIN
     Dosage: UNK
     Route: 048
     Dates: end: 2017
  4. INFLECTRA [Suspect]
     Active Substance: INFLIXIMAB-DYYB
     Indication: INFLAMMATORY BOWEL DISEASE
     Dosage: 450 MG, UNK
     Route: 042
     Dates: start: 20170117, end: 20170421
  5. PARACETAMOL [Suspect]
     Active Substance: ACETAMINOPHEN
     Indication: PAIN
     Dosage: 1 G, UNK
     Route: 048
     Dates: end: 2017
  6. DIAZEPAM. [Concomitant]
     Active Substance: DIAZEPAM
     Indication: DEPRESSION
     Route: 048

REACTIONS (2)
  - Lupus hepatitis [Recovered/Resolved]
  - Haemorrhagic ovarian cyst [Unknown]

NARRATIVE: CASE EVENT DATE: 2017
